FAERS Safety Report 6193713-5 (Version None)
Quarter: 2009Q2

REPORT INFORMATION
  Report Type: 
  Country: None (occurrence: None)
  Receive Date: 20090518
  Receipt Date: 20090511
  Transmission Date: 20091009
  Serious: Yes (Other)
  Sender: FDA-Public Use
  Company Number: US-ELI_LILLY_AND_COMPANY-US200905001901

PATIENT
  Sex: Male

DRUGS (3)
  1. HUMALOG [Suspect]
  2. GLUCAGON [Suspect]
     Indication: HYPOGLYCAEMIC SEIZURE
     Dosage: UNK, UNK
  3. LANTUS [Concomitant]

REACTIONS (3)
  - BLOOD GLUCOSE INCREASED [None]
  - CONVULSION [None]
  - HYPOGLYCAEMIC SEIZURE [None]
